FAERS Safety Report 5795619-X (Version None)
Quarter: 2008Q2

REPORT INFORMATION
  Report Type: 
  Country: None (occurrence: None)
  Receive Date: 20080630
  Receipt Date: 20080619
  Transmission Date: 20081010
  Serious: Yes (Death)
  Sender: FDA-Public Use
  Company Number: US-PFIZER INC-2008052281

PATIENT
  Age: 84 Year
  Sex: Male
  Weight: 55 kg

DRUGS (14)
  1. TIKOSYN [Suspect]
  2. CARDIZEM [Suspect]
  3. METHADON HCL TAB [Suspect]
  4. METHADON HCL TAB [Suspect]
  5. LEXAPRO [Suspect]
  6. LEXAPRO [Suspect]
  7. SENOKOT [Suspect]
  8. SENOKOT [Suspect]
  9. LIDODERM [Suspect]
  10. LIDODERM [Suspect]
  11. MS CONTIN [Concomitant]
  12. LEVOTHYROXINE SODIUM [Concomitant]
  13. DIGOXIN [Concomitant]
  14. PRILOSEC [Concomitant]

REACTIONS (2)
  - DEATH [None]
  - MEDICATION ERROR [None]
